FAERS Safety Report 6145686-9 (Version None)
Quarter: 2009Q2

REPORT INFORMATION
  Report Type: 
  Country: None (occurrence: None)
  Receive Date: 20090407
  Receipt Date: 20090326
  Transmission Date: 20091009
  Serious: Yes (Hospitalization)
  Sender: FDA-Public Use
  Company Number: US-JNJFOC-20090307533

PATIENT
  Sex: Male
  Weight: 59.42 kg

DRUGS (24)
  1. REMICADE [Suspect]
     Indication: RHEUMATOID ARTHRITIS
     Route: 042
  2. REMICADE [Suspect]
     Indication: PSORIATIC ARTHROPATHY
     Route: 042
  3. REMICADE [Suspect]
     Indication: ANKYLOSING SPONDYLITIS
     Dosage: STARTED 2003 OR 2004
     Route: 042
  4. ASPIRIN [Concomitant]
     Indication: CARDIAC FAILURE CONGESTIVE
     Dosage: FOR 5 TO 6 YEARS
  5. COUMADIN [Concomitant]
     Indication: THROMBOSIS
     Dosage: 2 TO 4 MG DOSE
  6. LIPITOR [Concomitant]
     Indication: BLOOD CHOLESTEROL
     Dosage: FOR 6 TO 7 YEARS
  7. LISINOPRIL [Concomitant]
     Indication: CARDIAC DISORDER
  8. METOPROLOL [Concomitant]
     Indication: BLOOD PRESSURE
     Dosage: STARTED 8 TO 9 YEARS AGO
  9. PAROXETINE HCL [Concomitant]
     Indication: ANTIDEPRESSANT THERAPY
     Dosage: 5 YEARS
  10. PHOSLO [Concomitant]
     Indication: DIALYSIS
     Dosage: FOR 5 YEARS
  11. NEXIUM [Concomitant]
     Dosage: FOR 5 YEARS
  12. RENAGEL [Concomitant]
     Indication: DIALYSIS
     Dosage: FOR 5 YEARS
  13. RENAX [Concomitant]
     Dosage: FOR 5 YEARS
  14. AMBIEN [Concomitant]
     Indication: SLEEP DISORDER
     Dosage: FOR 6 YEARS
  15. TICLID [Concomitant]
     Indication: CARDIAC DISORDER
     Dosage: FOR 5 YEARS
  16. TYLENOL [Concomitant]
     Indication: PAIN
     Dosage: FOR 5 YEARS
  17. SENSIPAR [Concomitant]
     Indication: DIALYSIS
     Dosage: FOR 5 YEARS
  18. VALIUM [Concomitant]
     Indication: STRESS
     Dosage: FOR 5 YEARS
  19. COMBIVENT [Concomitant]
     Indication: RHINORRHOEA
     Dosage: DOSE ^17^; FOR 5 YEARS
  20. ADVAIR HFA [Concomitant]
     Indication: LUNG DISORDER
     Dosage: DOSE OF 250/150 FOR 1 TO 2 YEARS
  21. EPOGEN [Concomitant]
     Indication: DIALYSIS
     Dosage: FOR 5 YEARS
  22. HECTORAL [Concomitant]
     Indication: DIALYSIS
     Dosage: FOR 5 YEARS
  23. HEPARIN [Concomitant]
     Indication: DIALYSIS
     Dosage: FOR 5 YEARS
  24. OTHER THERAPEUTIC PRODUCT [Concomitant]
     Dosage: FOR 5 OR 6 YEARS

REACTIONS (1)
  - RENAL TRANSPLANT [None]
